FAERS Safety Report 5804603-9 (Version None)
Quarter: 2008Q3

REPORT INFORMATION
  Report Type: 
  Country: None (occurrence: None)
  Receive Date: 20080702
  Receipt Date: 20071008
  Transmission Date: 20090109
  Serious: Yes (Hospitalization)
  Sender: FDA-Public Use
  Company Number: 523473

PATIENT
  Age: 47 Year
  Sex: Female
  Weight: 63.5 kg

DRUGS (5)
  1. KLONOPIN [Suspect]
     Indication: DRUG USE FOR UNKNOWN INDICATION
  2. XYREM [Suspect]
     Indication: FIBROMYALGIA
     Dosage: 7.5 GRAM 1 PER DAY ORAL
     Route: 048
     Dates: end: 20070921
  3. AMBIEN [Suspect]
     Indication: DRUG USE FOR UNKNOWN INDICATION
  4. SERTRALINE [Concomitant]
  5. REMERON [Concomitant]

REACTIONS (1)
  - SUICIDE ATTEMPT [None]
